FAERS Safety Report 17551833 (Version 1)
Quarter: 2020Q1

REPORT INFORMATION
  Report Type: Spontaneous
  Country: US (occurrence: US)
  Receive Date: 20200317
  Receipt Date: 20200317
  Transmission Date: 20200409
  Serious: No
  Sender: FDA-Public Use
  Company Number: US-JAZZ-JPI-P-014556

PATIENT
  Age: 35 Year
  Sex: Female
  Weight: 48.64 kg

DRUGS (4)
  1. XYREM [Suspect]
     Active Substance: SODIUM OXYBATE
     Indication: NARCOLEPSY
     Dosage: 2.25 G, BID
     Route: 048
     Dates: start: 20110312, end: 201103
  2. XYREM [Suspect]
     Active Substance: SODIUM OXYBATE
     Indication: SOMNOLENCE
     Dosage: 3.5 G, BID
     Route: 048
     Dates: start: 201103, end: 2011
  3. XYREM [Suspect]
     Active Substance: SODIUM OXYBATE
     Dosage: 2.25 G, BID
     Route: 048
     Dates: start: 2011
  4. XANAX [Suspect]
     Active Substance: ALPRAZOLAM
     Indication: PRODUCT USED FOR UNKNOWN INDICATION

REACTIONS (12)
  - Feeling hot [Unknown]
  - Nausea [Unknown]
  - Vomiting [Recovered/Resolved]
  - Somnolence [Not Recovered/Not Resolved]
  - Vasodilatation [Unknown]
  - Dysgeusia [Unknown]
  - Constipation [Unknown]
  - Blood pressure increased [Unknown]
  - Headache [Unknown]
  - Off label use [Unknown]
  - Pre-existing condition improved [Unknown]
  - Anxiety [Unknown]

NARRATIVE: CASE EVENT DATE: 201103
